FAERS Safety Report 9512346 (Version 1)
Quarter: 2013Q3

REPORT INFORMATION
  Report Type: Spontaneous
  Country: US (occurrence: US)
  Receive Date: 20130910
  Receipt Date: 20130910
  Transmission Date: 20140515
  Serious: No
  Sender: FDA-Public Use
  Company Number: -SAAVPROD-BMS18963645

PATIENT
  Age: 80 Year
  Sex: Female

DRUGS (1)
  1. AVAPRO TABS 150 MG [Suspect]
     Indication: HYPERTENSION

REACTIONS (1)
  - Medication error [Unknown]
